FAERS Safety Report 9836952 (Version 1)
Quarter: 2014Q1

REPORT INFORMATION
  Report Type: Spontaneous
  Country: US (occurrence: US)
  Receive Date: 20140123
  Receipt Date: 20140123
  Transmission Date: 20141002
  Serious: No
  Sender: FDA-Public Use
  Company Number: US-PFIZER INC-2014017238

PATIENT
  Age: 57 Year
  Sex: Male
  Weight: 68.03 kg

DRUGS (3)
  1. CELEBREX [Suspect]
     Indication: ANKYLOSING SPONDYLITIS
     Dosage: 200 MG, DAILY
     Route: 048
     Dates: end: 20100328
  2. CELEBREX [Suspect]
     Dosage: 200 MG, DAILY
     Route: 048
     Dates: end: 20140117
  3. OXYCODONE [Concomitant]
     Indication: PAIN
     Dosage: 5 MG (THREE TO FOUR TIMES A DAY)
     Dates: start: 2013

REACTIONS (1)
  - Blood iron decreased [Unknown]
